FAERS Safety Report 9592314 (Version 1)
Quarter: 2013Q4

REPORT INFORMATION
  Report Type: Spontaneous
  Country: US (occurrence: US)
  Receive Date: 20131004
  Receipt Date: 20131004
  Transmission Date: 20140711
  Serious: Yes (Other)
  Sender: FDA-Public Use
  Company Number: US-ASTRAZENECA-2013SE72173

PATIENT
  Age: 15493 Day
  Sex: Female
  Weight: 58.1 kg

DRUGS (10)
  1. NEXIUM [Suspect]
     Indication: GASTROOESOPHAGEAL REFLUX DISEASE
     Route: 048
     Dates: start: 2011, end: 20130925
  2. NEXIUM [Suspect]
     Indication: GASTROOESOPHAGEAL REFLUX DISEASE
     Route: 048
     Dates: start: 20130925
  3. TOPAMAX [Concomitant]
     Indication: MIGRAINE
     Route: 048
  4. ZOVIA [Concomitant]
     Indication: CONTRACEPTION
     Dosage: DAILY
     Route: 048
  5. MELOXICAM [Concomitant]
     Indication: BACK INJURY
     Dosage: PRN
     Route: 048
     Dates: start: 20121102
  6. MELOXICAM [Concomitant]
     Indication: JOINT INJURY
     Dosage: PRN
     Route: 048
     Dates: start: 20121102
  7. TRAMADOL [Concomitant]
     Indication: ARTHRALGIA
     Dosage: PRN
     Route: 048
     Dates: start: 20121102
  8. TRAMADOL [Concomitant]
     Indication: BACK PAIN
     Dosage: PRN
     Route: 048
     Dates: start: 20121102
  9. VICODIN [Concomitant]
     Indication: ARTHRALGIA
     Dosage: PRN
     Route: 048
     Dates: start: 20121102
  10. VICODIN [Concomitant]
     Indication: BACK PAIN
     Dosage: PRN
     Route: 048
     Dates: start: 20121102

REACTIONS (5)
  - Fall [Unknown]
  - Intervertebral disc protrusion [Unknown]
  - Ligament sprain [Unknown]
  - Abdominal pain [Not Recovered/Not Resolved]
  - Off label use [Not Recovered/Not Resolved]
